FAERS Safety Report 8623477-4 (Version None)
Quarter: 2012Q3

REPORT INFORMATION
  Report Type: 
  Country: None (occurrence: None)
  Receive Date: 20120824
  Receipt Date: 20120824
  Transmission Date: 20120928
  Serious: No
  Sender: FDA-Public Use
  Company Number: None

PATIENT
  Sex: Male
  Weight: 81.6475 kg

DRUGS (1)
  1. COMBIGAN [Suspect]
     Dosage: ONE DROP EACH DAY BID
     Route: 047

REACTIONS (1)
  - VENTRICULAR EXTRASYSTOLES [None]
